FAERS Safety Report 5096340-6 (Version None)
Quarter: 2006Q3

REPORT INFORMATION
  Report Type: 
  Country: None (occurrence: None)
  Receive Date: 20060830
  Receipt Date: 20060823
  Transmission Date: 20061208
  Serious: Yes (Other)
  Sender: FDA-Public Use
  Company Number: 0604229US

PATIENT
  Age: 38 Year
  Sex: Female

DRUGS (4)
  1. GATIFLO(GATIFLOXACIN SESQUIHYDRATE) EYE DROPS, SOLUTION, 0.3% [Suspect]
     Indication: ULCERATIVE KERATITIS
     Dosage: QID, OPHTHALMIC
     Route: 047
     Dates: start: 20060707, end: 20060714
  2. GATIFLO(GATIFLOXACIN SESQUIHYDRATE) EYE DROPS, SOLUTION, 0.3% [Suspect]
     Indication: ULCERATIVE KERATITIS
     Dosage: QID, OPHTHALMIC
     Route: 047
     Dates: start: 20060715, end: 20060717
  3. TEARBALANCE (HYALURONATE SODIUM) [Suspect]
     Indication: ULCERATIVE KERATITIS
     Dosage: QID, OPHTHALMIC
     Route: 047
     Dates: start: 20060707, end: 20060714
  4. TEARBALANCE (HYALURONATE SODIUM) [Suspect]
     Indication: ULCERATIVE KERATITIS
     Dosage: QID, OPHTHALMIC
     Route: 047
     Dates: start: 20060715, end: 20060717

REACTIONS (2)
  - CONDITION AGGRAVATED [None]
  - ULCERATIVE KERATITIS [None]
